FAERS Safety Report 8417535-7 (Version None)
Quarter: 2012Q2

REPORT INFORMATION
  Report Type: 
  Country: None (occurrence: None)
  Receive Date: 20120606
  Receipt Date: 20120528
  Transmission Date: 20120825
  Serious: Yes (Hospitalization, Other)
  Sender: FDA-Public Use
  Company Number: IT-BAXTER-2012BH006004

PATIENT
  Sex: Female
  Weight: 45.5 kg

DRUGS (4)
  1. PREDNISOLONE [Suspect]
     Indication: DIFFUSE LARGE B-CELL LYMPHOMA
     Route: 048
     Dates: start: 20111114, end: 20111118
  2. VINCRISTINE [Suspect]
     Indication: DIFFUSE LARGE B-CELL LYMPHOMA
     Route: 042
     Dates: start: 20111114
  3. CYTOXAN [Suspect]
     Indication: DIFFUSE LARGE B-CELL LYMPHOMA
     Route: 042
     Dates: start: 20111114
  4. DOXORUBICIN HCL [Suspect]
     Indication: DIFFUSE LARGE B-CELL LYMPHOMA
     Route: 042
     Dates: start: 20111114

REACTIONS (6)
  - NEUTROPHIL COUNT DECREASED [None]
  - PNEUMONITIS [None]
  - STREPTOCOCCAL INFECTION [None]
  - PLATELET COUNT DECREASED [None]
  - HYPERTRANSAMINASAEMIA [None]
  - NEUTROPENIA [None]
